FAERS Safety Report 17929700 (Version 10)
Quarter: 2024Q1

REPORT INFORMATION
  Report Type: Spontaneous
  Country: US (occurrence: US)
  Receive Date: 20200623
  Receipt Date: 20240319
  Transmission Date: 20240410
  Serious: No
  Sender: FDA-Public Use
  Company Number: US-PFIZER INC-2020018349

PATIENT
  Age: 77 Year
  Sex: Female
  Weight: 95.25 kg

DRUGS (2)
  1. PREMPRO [Suspect]
     Active Substance: ESTROGENS, CONJUGATED\MEDROXYPROGESTERONE ACETATE
     Indication: Menopausal disorder
     Dosage: 1 TABLET OF 0.625MG/2.5MG, ONCE DAILY (STRENGTH: 0.0625 MG/2.5 MG)
     Route: 048
     Dates: end: 20200531
  2. PREMPRO [Suspect]
     Active Substance: ESTROGENS, CONJUGATED\MEDROXYPROGESTERONE ACETATE
     Dosage: UNK (2/0.625MG)

REACTIONS (8)
  - Poor quality sleep [Unknown]
  - Anxiety [Unknown]
  - Hyperphagia [Unknown]
  - Memory impairment [Unknown]
  - Blood cholesterol increased [Unknown]
  - Product dispensing error [Unknown]
  - Product prescribing error [Unknown]
  - Intentional product misuse [Unknown]
